FAERS Safety Report 10099529 (Version 2)
Quarter: 2014Q2

REPORT INFORMATION
  Report Type: Spontaneous
  Country: NL (occurrence: NL)
  Receive Date: 20140423
  Receipt Date: 20140423
  Transmission Date: 20141212
  Serious: Yes (Hospitalization)
  Sender: FDA-Public Use
  Company Number: NL-B.I. PHARMACEUTICALS,INC./RIDGEFIELD-2014-BI-16043NL

PATIENT
  Sex: Female
  Weight: 58 kg

DRUGS (5)
  1. STRIVERDI RESPIMAT [Suspect]
     Indication: PRODUCT USED FOR UNKNOWN INDICATION
     Dosage: DAILY DOSE: 5 MG (2.5 MCG AT 07:00 AM AND AT 18:00 IF REQUIRED)
     Route: 055
     Dates: start: 20140407
  2. SPIRIVA [Suspect]
     Indication: PRODUCT USED FOR UNKNOWN INDICATION
     Dosage: 1DD 2 PUFFS
     Route: 055
  3. ZYRTEC [Concomitant]
     Dosage: 10 MG
     Route: 065
  4. FLIXONASE [Concomitant]
     Dosage: 100 MCG
     Route: 065
  5. SALBUTAMOL REDIHALER [Concomitant]
     Route: 065

REACTIONS (1)
  - Chronic obstructive pulmonary disease [Recovered/Resolved]
